FAERS Safety Report 25997508 (Version 2)
Quarter: 2025Q4

REPORT INFORMATION
  Report Type: Spontaneous
  Country: EU (occurrence: EU)
  Receive Date: 20251104
  Receipt Date: 20251127
  Transmission Date: 20260117
  Serious: Yes (Other)
  Sender: ABBVIE
  Company Number: EU-ALFASIGMA-2025-AER-06864

PATIENT
  Sex: Female

DRUGS (4)
  1. ADALIMUMAB [Suspect]
     Active Substance: ADALIMUMAB
     Indication: Product used for unknown indication
     Route: 058
     Dates: start: 202207, end: 202209
  2. ADALIMUMAB [Suspect]
     Active Substance: ADALIMUMAB
     Route: 058
     Dates: start: 202101
  3. METHOTREXATE [Suspect]
     Active Substance: METHOTREXATE
     Indication: Rheumatoid arthritis
     Route: 065
     Dates: start: 202207, end: 202209
  4. METHOTREXATE [Suspect]
     Active Substance: METHOTREXATE
     Indication: Rheumatoid arthritis
     Route: 065
     Dates: start: 202101

REACTIONS (5)
  - Pseudomonas test positive [Not Recovered/Not Resolved]
  - Knee arthroplasty [Unknown]
  - Osteomyelitis chronic [Not Recovered/Not Resolved]
  - Device related infection [Unknown]
  - Infection [Unknown]

NARRATIVE: CASE EVENT DATE: 20220501
